FAERS Safety Report 7067360-7 (Version None)
Quarter: 2010Q4

REPORT INFORMATION
  Report Type: 
  Country: None (occurrence: None)
  Receive Date: 20101022
  Receipt Date: 20101022
  Transmission Date: 20110411
  Serious: Yes (Hospitalization)
  Sender: FDA-Public Use
  Company Number: None

PATIENT
  Sex: Female
  Weight: 60.91 kg

DRUGS (2)
  1. CISPLATIN [Suspect]
     Dosage: 48 MG
  2. ERBITUX [Suspect]
     Dosage: 400 MG

REACTIONS (4)
  - ABDOMINAL PAIN LOWER [None]
  - BLOOD GLUCOSE INCREASED [None]
  - PEPTOSTREPTOCOCCUS TEST POSITIVE [None]
  - PSOAS ABSCESS [None]
